FAERS Safety Report 5641697-8 (Version None)
Quarter: 2008Q1

REPORT INFORMATION
  Report Type: 
  Country: None (occurrence: None)
  Receive Date: 20080227
  Receipt Date: 20080215
  Transmission Date: 20080703
  Serious: Yes (Other)
  Sender: FDA-Public Use
  Company Number: US-WYE-H01584607

PATIENT
  Sex: Male
  Weight: 80.5 kg

DRUGS (7)
  1. REFACTO [Suspect]
     Indication: FACTOR VIII DEFICIENCY
     Dosage: 4008.6 IU (50.0 IU/KG)
     Route: 042
     Dates: start: 20070906, end: 20070906
  2. REFACTO [Suspect]
     Dosage: 2 PRE-SURGICAL INFUSIONS OF 4405 IU (54.7 IU/KG) AND 2643 IU (32.8 IU/KG)
     Route: 042
     Dates: start: 20070911, end: 20070911
  3. REFACTO [Suspect]
     Dosage: POST SURGICAL PROPHYLAXIS RANGING FROM 3524-4020 IU PER INFUSION(43.8-49.9 IU/KG)EVERY DAY FOR 2 WKS
     Route: 042
     Dates: start: 20070901, end: 20070901
  4. REFACTO [Suspect]
     Dosage: 3015 IU PER INFUSION (37.5 IU/KG) EVERY OTHER DAY FOR APPROXIMATELY 3 WEEKS
     Route: 042
     Dates: start: 20070101, end: 20071026
  5. MAXALT [Concomitant]
     Indication: MIGRAINE
     Route: 065
     Dates: start: 19970101
  6. ACETAMINOPHEN AND OXYCODONE HCL [Concomitant]
     Indication: PAIN
     Dosage: 5 MG AS NEEDED
     Route: 065
  7. METOPROLOL TARTRATE [Concomitant]
     Indication: HYPERTENSION
     Route: 048
     Dates: start: 20070912

REACTIONS (1)
  - FACTOR VIII INHIBITION [None]
